FAERS Safety Report 7648160-3 (Version None)
Quarter: 2011Q3

REPORT INFORMATION
  Report Type: 
  Country: None (occurrence: None)
  Receive Date: 20110801
  Receipt Date: 20110114
  Transmission Date: 20111222
  Serious: No
  Sender: FDA-Public Use
  Company Number: US-BAYER-2011-007457

PATIENT
  Age: 27 Year
  Sex: Male

DRUGS (1)
  1. INTERFERON BETA-1B [Suspect]
     Indication: RELAPSING-REMITTING MULTIPLE SCLEROSIS
     Dosage: 8 MIU, QOD
     Route: 058
     Dates: start: 20100714

REACTIONS (5)
  - NAUSEA [None]
  - RESPIRATORY TRACT CONGESTION [None]
  - GAIT DISTURBANCE [None]
  - NASOPHARYNGITIS [None]
  - PYREXIA [None]
